FAERS Safety Report 22049067 (Version 1)
Quarter: 2023Q1

REPORT INFORMATION
  Report Type: Spontaneous
  Country: US (occurrence: US)
  Receive Date: 20230301
  Receipt Date: 20230301
  Transmission Date: 20230418
  Serious: No
  Sender: FDA-Public Use
  Company Number: US-PFIZER INC-PV202300034260

PATIENT
  Age: 72 Year
  Sex: Female

DRUGS (8)
  1. IBRANCE [Suspect]
     Active Substance: PALBOCICLIB
     Dosage: 1 DF, CYCLIC (1 DAILY FOR 21 DAYS)
     Route: 048
     Dates: start: 20191018
  2. IBRANCE [Suspect]
     Active Substance: PALBOCICLIB
     Dosage: 1 DF, CYCLIC (1 DAILY FOR 21 DAYS)
     Route: 048
     Dates: start: 20230220
  3. LETROZOLE [Concomitant]
     Active Substance: LETROZOLE
  4. TRIAMCINOLONE [Concomitant]
     Active Substance: TRIAMCINOLONE
  5. ALENDRONATE [Concomitant]
     Active Substance: ALENDRONATE SODIUM
  6. AMLODIPINE [Concomitant]
     Active Substance: AMLODIPINE BESYLATE
  7. LAMIVUDINE [Concomitant]
     Active Substance: LAMIVUDINE
  8. PANTOPRAZOLE [Concomitant]
     Active Substance: PANTOPRAZOLE

REACTIONS (2)
  - Alopecia [Recovered/Resolved with Sequelae]
  - Pruritus [Recovered/Resolved with Sequelae]
